FAERS Safety Report 4716795-3 (Version None)
Quarter: 2005Q3

REPORT INFORMATION
  Report Type: 
  Country: None (occurrence: None)
  Receive Date: 20050719
  Receipt Date: 20050708
  Transmission Date: 20060218
  Serious: Yes (Other)
  Sender: FDA-Public Use
  Company Number: IE-GLAXOSMITHKLINE-B0387573A

PATIENT
  Sex: Female

DRUGS (1)
  1. NIQUITIN CQ 14MG [Suspect]
     Dosage: 14MG PER DAY
     Route: 062
     Dates: start: 20050621

REACTIONS (3)
  - COUGH [None]
  - MALAISE [None]
  - STRESS INCONTINENCE [None]
